FAERS Safety Report 7954955-9 (Version None)
Quarter: 2011Q4

REPORT INFORMATION
  Report Type: 
  Country: None (occurrence: None)
  Receive Date: 20111125
  Receipt Date: 20111117
  Transmission Date: 20120403
  Serious: Yes (Hospitalization, Other)
  Sender: FDA-Public Use
  Company Number: JPI-P-015291

PATIENT
  Age: 61 Year
  Sex: Female
  Weight: 112.9457 kg

DRUGS (7)
  1. TRASTUZUMAB [Suspect]
     Indication: BREAST CANCER
     Dosage: (1 IN 1 WK),INTRAVENOUS
     Route: 042
     Dates: start: 20111001
  2. XYREM [Suspect]
     Indication: NARCOLEPSY
     Dosage: 4.5 GM (2.25 GM,2 IN 1 D),ORAL ; ORAL ; 12 GM (6 GM,2 IN 1 D),ORAL
     Route: 048
     Dates: start: 20060324, end: 20060101
  3. XYREM [Suspect]
     Indication: SOMNOLENCE
     Dosage: 4.5 GM (2.25 GM,2 IN 1 D),ORAL ; ORAL ; 12 GM (6 GM,2 IN 1 D),ORAL
     Route: 048
     Dates: start: 20060324, end: 20060101
  4. XYREM [Suspect]
     Indication: NARCOLEPSY
     Dosage: 4.5 GM (2.25 GM,2 IN 1 D),ORAL ; ORAL ; 12 GM (6 GM,2 IN 1 D),ORAL
     Route: 048
     Dates: start: 20060101, end: 20060101
  5. XYREM [Suspect]
     Indication: SOMNOLENCE
     Dosage: 4.5 GM (2.25 GM,2 IN 1 D),ORAL ; ORAL ; 12 GM (6 GM,2 IN 1 D),ORAL
     Route: 048
     Dates: start: 20060101, end: 20060101
  6. XYREM [Suspect]
     Indication: NARCOLEPSY
     Dosage: 4.5 GM (2.25 GM,2 IN 1 D),ORAL ; ORAL ; 12 GM (6 GM,2 IN 1 D),ORAL
     Route: 048
     Dates: start: 20061227
  7. XYREM [Suspect]
     Indication: SOMNOLENCE
     Dosage: 4.5 GM (2.25 GM,2 IN 1 D),ORAL ; ORAL ; 12 GM (6 GM,2 IN 1 D),ORAL
     Route: 048
     Dates: start: 20061227

REACTIONS (3)
  - NAUSEA [None]
  - FOOD POISONING [None]
  - DIARRHOEA [None]
